FAERS Safety Report 20978784 (Version 1)
Quarter: 2022Q2

REPORT INFORMATION
  Report Type: Spontaneous
  Country: FR (occurrence: FR)
  Receive Date: 20220619
  Receipt Date: 20220619
  Transmission Date: 20220720
  Serious: Yes (Life-Threatening, Hospitalization)
  Sender: FDA-Public Use
  Company Number: None

PATIENT
  Age: 63 Year
  Sex: Male
  Weight: 103 kg

DRUGS (4)
  1. CEFTRIAXONE SODIUM [Suspect]
     Active Substance: CEFTRIAXONE SODIUM
     Indication: Urinary tract infection
     Dosage: 1GM, FREQUENCY TIME 1DAYS, DURATION 2DAYS
     Route: 040
     Dates: start: 20220524, end: 20220526
  2. AMOXICILLIN [Suspect]
     Active Substance: AMOXICILLIN
     Indication: Urinary tract infection
     Dosage: 1GM, FREQUENCY TIME 12HRS, DURATION 2DAYS
     Route: 048
     Dates: start: 20220524, end: 20220526
  3. BACTRIM [Suspect]
     Active Substance: SULFAMETHOXAZOLE\TRIMETHOPRIM
     Indication: Antibiotic prophylaxis
     Dosage: 0.5 CP MONDAY / WEDNESDAY / FRIDAY, BACTRIM FORTE, FREQUENCY TIME WEEKS, DURATION 24DAYS, 1.5DF
     Route: 048
     Dates: start: 20220503, end: 20220526
  4. AUGMENTIN [Suspect]
     Active Substance: AMOXICILLIN\CLAVULANATE POTASSIUM
     Indication: Urinary tract infection
     Dosage: 1GM, FREQUENCY TIME 12HRS, DURATION 6DAYS
     Route: 048
     Dates: start: 20220517, end: 20220523

REACTIONS (1)
  - Hepatitis fulminant [Not Recovered/Not Resolved]

NARRATIVE: CASE EVENT DATE: 20220527
